FAERS Safety Report 7449992-7 (Version None)
Quarter: 2011Q2

REPORT INFORMATION
  Report Type: 
  Country: None (occurrence: None)
  Receive Date: 20110421
  Receipt Date: 20110413
  Transmission Date: 20111010
  Serious: Yes (Other)
  Sender: FDA-Public Use
  Company Number: 2011SP016850

PATIENT
  Age: 8 Year
  Sex: Male

DRUGS (2)
  1. REMERON [Suspect]
     Indication: PRODUCT USED FOR UNKNOWN INDICATION
     Dates: start: 20100101, end: 20100101
  2. STRATTERA [Concomitant]

REACTIONS (5)
  - CONVULSION [None]
  - CONFUSIONAL STATE [None]
  - AGGRESSION [None]
  - OPPOSITIONAL DEFIANT DISORDER [None]
  - TREMOR [None]
